FAERS Safety Report 24327541 (Version 1)
Quarter: 2024Q3

REPORT INFORMATION
  Report Type: Spontaneous
  Country: US (occurrence: None)
  Receive Date: 20240916
  Receipt Date: 20240916
  Transmission Date: 20241017
  Serious: Yes (Other)
  Sender: Public
  Company Number: None

PATIENT
  Age: 31 Year
  Sex: Female
  Weight: 58.5 kg

DRUGS (4)
  1. VUITY [Suspect]
     Active Substance: PILOCARPINE HYDROCHLORIDE
     Indication: Dizziness
     Dosage: 1 DROP DAILY OPHTHALMIC
     Route: 047
     Dates: start: 20240915, end: 20240915
  2. VUITY [Suspect]
     Active Substance: PILOCARPINE HYDROCHLORIDE
     Indication: Prophylaxis
  3. ATIVAN [Concomitant]
     Active Substance: LORAZEPAM
  4. LAMOTRIGINE [Concomitant]
     Active Substance: LAMOTRIGINE

REACTIONS (6)
  - Miosis [None]
  - Visual impairment [None]
  - Dizziness [None]
  - Vertigo [None]
  - Nausea [None]
  - Migraine [None]

NARRATIVE: CASE EVENT DATE: 20240915
